FAERS Safety Report 17568852 (Version 1)
Quarter: 2020Q1

REPORT INFORMATION
  Report Type: Spontaneous
  Country: ES (occurrence: ES)
  Receive Date: 20200321
  Receipt Date: 20200321
  Transmission Date: 20200409
  Serious: Yes (Hospitalization)
  Sender: FDA-Public Use
  Company Number: ES-TEVA-2020-ES-1205535

PATIENT
  Age: 79 Year
  Sex: Female

DRUGS (10)
  1. FUROSEMIDA 40 MG 30 COMPRIMIDOS [Interacting]
     Active Substance: FUROSEMIDE
     Dosage: 40 MG
     Route: 048
     Dates: start: 20170105
  2. ZALDIAR 37,5 MG/325 MG COMPRIMIDOS RECUBIERTOS CON PELICULA , 60 COMPR [Concomitant]
     Indication: BACK PAIN
     Dosage: 1 DF, 37.5 MG / 325 MG
     Route: 048
     Dates: start: 20200219, end: 20200229
  3. LANACORDIN PEDIATRICO [Concomitant]
     Indication: ATRIAL FIBRILLATION
     Dosage: 3 A DAY
     Dates: start: 20170222, end: 20200226
  4. IBUPROFENO 600 MG COMPRIMIDO [Concomitant]
     Active Substance: IBUPROFEN
     Indication: BACK PAIN
     Dosage: 600 MG
     Route: 048
     Dates: start: 20200214, end: 20200216
  5. BISOPROLOL 5 MG COMPRIMIDO [Concomitant]
     Active Substance: BISOPROLOL
     Dosage: 5 MG
     Route: 048
     Dates: start: 20171107, end: 20200226
  6. DEXKETOPROFENO [Interacting]
     Active Substance: DEXKETOPROFEN
     Indication: BACK PAIN
     Dosage: 50 MILLIGRAM DAILY;
     Route: 048
     Dates: start: 20200216, end: 20200219
  7. ENALAPRIL/HCLTIAZ [Suspect]
     Active Substance: ENALAPRIL MALEATE\HYDROCHLOROTHIAZIDE
     Indication: HYPERTENSION
     Dosage: 1 DOSAGE FORMS DAILY;
     Route: 048
     Dates: start: 20130304, end: 20200227
  8. DICLOFENACO RETARD 75 [Interacting]
     Active Substance: DICLOFENAC SODIUM
     Indication: BACK PAIN
     Dosage: 150 MILLIGRAM DAILY;
     Route: 048
     Dates: start: 20200219, end: 20200225
  9. METAMIZOL 575 MG 20 CAPSULAS [Concomitant]
     Indication: BACK PAIN
     Dosage: 575 MG
     Route: 048
     Dates: start: 20200219
  10. SINTROM [Concomitant]
     Active Substance: ACENOCOUMAROL
     Indication: ATRIAL FIBRILLATION
     Dosage: 6 MG
     Route: 048
     Dates: start: 20180725

REACTIONS (3)
  - Acute kidney injury [Recovering/Resolving]
  - Drug interaction [Unknown]
  - Toxicity to various agents [Recovering/Resolving]

NARRATIVE: CASE EVENT DATE: 20200226
